FAERS Safety Report 23951439 (Version 2)
Quarter: 2024Q3

REPORT INFORMATION
  Report Type: Spontaneous
  Country: US (occurrence: US)
  Receive Date: 20240607
  Receipt Date: 20240709
  Transmission Date: 20241017
  Serious: No
  Sender: Haleon PLC
  Company Number: US-HALEON-2180333

PATIENT
  Age: 29 Year
  Sex: Male

DRUGS (1)
  1. SENSODYNE SENSITIVITY GUM AND ENAMEL MINT [Suspect]
     Active Substance: STANNOUS FLUORIDE
     Indication: Dental cleaning
     Dates: end: 20240529

REACTIONS (5)
  - Tongue discomfort [Recovering/Resolving]
  - Glossodynia [Recovering/Resolving]
  - Feeding disorder [Unknown]
  - Dysarthria [Unknown]
  - Impaired work ability [Unknown]

NARRATIVE: CASE EVENT DATE: 20240529
